FAERS Safety Report 7387210-9 (Version None)
Quarter: 2011Q1

REPORT INFORMATION
  Report Type: 
  Country: None (occurrence: None)
  Receive Date: 20110331
  Receipt Date: 20110322
  Transmission Date: 20110831
  Serious: Yes (Other)
  Sender: FDA-Public Use
  Company Number: US-JNJFOC-20110311745

PATIENT
  Age: 79 Year
  Sex: Female

DRUGS (1)
  1. NEOSPORIN LIP HEALTH OVERNIGHT RENEWAL THERAPY [Suspect]
     Indication: CHAPPED LIPS
     Route: 061

REACTIONS (3)
  - ORAL MUCOSAL EXFOLIATION [None]
  - ORAL DISCOMFORT [None]
  - ACCIDENTAL EXPOSURE [None]
